APPROVED DRUG PRODUCT: PICATO
Active Ingredient: INGENOL MEBUTATE
Strength: 0.015%
Dosage Form/Route: GEL;TOPICAL
Application: N202833 | Product #001
Applicant: LEO LABORATORIES LTD
Approved: Jan 23, 2012 | RLD: Yes | RS: No | Type: DISCN

PATENTS:
Patent 8716271 | Expires: Dec 18, 2026
Patent 8536163 | Expires: Dec 18, 2026
Patent 8735375 | Expires: Dec 18, 2026
Patent 9789078 | Expires: May 15, 2033
Patent 9820959 | Expires: Dec 18, 2026
Patent 9861603 | Expires: Dec 18, 2026
Patent 8377919 | Expires: Dec 18, 2026
Patent 8372827 | Expires: Dec 18, 2026
Patent 9833429 | Expires: Dec 18, 2026
Patent 8372828 | Expires: Dec 18, 2026
Patent 9833428 | Expires: Dec 18, 2026
Patent 8278292 | Expires: Jul 6, 2027